FAERS Safety Report 9999084 (Version 1)
Quarter: 2014Q1

REPORT INFORMATION
  Report Type: Spontaneous
  Country: US (occurrence: None)
  Receive Date: 20140311
  Receipt Date: 20140311
  Transmission Date: 20141002
  Serious: Yes (Disabling)
  Sender: FDA-Public Use
  Company Number: None

PATIENT
  Age: 35 Year
  Sex: Female
  Weight: 63.5 kg

DRUGS (1)
  1. WELLBUTRIN [Suspect]
     Indication: SEASONAL AFFECTIVE DISORDER
     Dosage: 1 PILL THREE TIMES DAILY TAKEN BY MOUTH
     Route: 048

REACTIONS (13)
  - Fatigue [None]
  - Lymphadenopathy [None]
  - Tonsillitis [None]
  - Migraine [None]
  - Neuropathy peripheral [None]
  - Rhinitis [None]
  - Upper-airway cough syndrome [None]
  - Myalgia [None]
  - Arthralgia [None]
  - Product substitution issue [None]
  - Impaired work ability [None]
  - Mobility decreased [None]
  - Asthenia [None]
